FAERS Safety Report 8759977 (Version 1)
Quarter: 2012Q4

REPORT INFORMATION
  Report Type: 
  Country: US (occurrence: US)
  Receive Date: 20120829
  Receipt Date: 20120829
  Transmission Date: 20130627
  Serious: Yes (Other)
  Sender: FDA-Public Use
  Company Number: US-JNJFOC-20120813246

PATIENT
  Age: 76 Year
  Sex: Female
  Weight: 56.69 kg

DRUGS (10)
  1. IBUPROFEN [Suspect]
     Indication: SPINAL DISORDER
     Route: 048
  2. CHANTIX [Suspect]
     Indication: SMOKING CESSATION THERAPY
     Route: 048
  3. CHANTIX [Suspect]
     Indication: SMOKING CESSATION THERAPY
     Route: 048
     Dates: end: 201208
  4. CHANTIX [Suspect]
     Indication: SMOKING CESSATION THERAPY
     Route: 048
     Dates: start: 2011
  5. METFORMIN HYDROCHLORIDE [Concomitant]
     Indication: TYPE 2 DIABETES MELLITUS
     Route: 065
  6. SIMVASTATIN [Concomitant]
     Route: 065
  7. METOPROLOL TARTRATE [Concomitant]
     Indication: HYPERTENSION
     Route: 065
  8. HYDROCHLOROTHIAZIDE [Concomitant]
     Indication: HYPERTENSION
     Route: 065
  9. LISINOPRIL [Concomitant]
     Indication: HYPERTENSION
     Route: 065
  10. GLIPIZIDE [Concomitant]
     Indication: TYPE 2 DIABETES MELLITUS
     Route: 065

REACTIONS (6)
  - Gastrointestinal disorder [Unknown]
  - Negative thoughts [Recovered/Resolved]
  - Mood altered [Recovered/Resolved]
  - Depression [Recovered/Resolved]
  - Abdominal discomfort [Recovered/Resolved]
  - Nausea [Recovered/Resolved]
